FAERS Safety Report 9025318 (Version 3)
Quarter: 2013Q3

REPORT INFORMATION
  Report Type: Spontaneous
  Country: US (occurrence: US)
  Receive Date: 20130122
  Receipt Date: 20130906
  Transmission Date: 20140515
  Serious: Yes (Hospitalization, Other)
  Sender: FDA-Public Use
  Company Number: US-MERCK-1301USA010097

PATIENT
  Sex: Female

DRUGS (8)
  1. FOSAMAX [Suspect]
     Indication: OSTEOPOROSIS
     Dosage: 70 MG, UNK
     Route: 048
     Dates: start: 20010423, end: 200701
  2. SYNTHROID [Concomitant]
     Indication: BLOOD CHOLESTEROL
     Dosage: UNK
     Dates: start: 1999
  3. ACETAMINOPHEN (+) HYDROCODONE BITARTRATE [Concomitant]
     Indication: PAIN
     Dosage: UNK
     Dates: start: 1999, end: 1999
  4. LEVOXYL [Concomitant]
     Indication: THYROID DISORDER
     Dosage: UNK
     Dates: start: 2000, end: 2004
  5. LIPITOR [Concomitant]
     Indication: BLOOD CHOLESTEROL
     Dosage: UNK
     Dates: start: 2000, end: 2005
  6. AVANDIA [Concomitant]
     Dosage: UNK
     Dates: start: 1999, end: 2006
  7. LEVOTHYROXINE SODIUM [Concomitant]
     Dosage: UNK
     Dates: start: 2001
  8. CLARITIN [Concomitant]
     Dosage: UNK
     Dates: start: 2001, end: 2001

REACTIONS (22)
  - Femur fracture [Unknown]
  - Cholecystectomy [Unknown]
  - Open reduction of fracture [Unknown]
  - Cardiac failure congestive [Unknown]
  - Removal of internal fixation [Unknown]
  - Myocardial infarction [Unknown]
  - Osteonecrosis [Unknown]
  - Nasal congestion [Unknown]
  - Respiratory tract congestion [Unknown]
  - Fall [Unknown]
  - Hypertension [Unknown]
  - Hypothyroidism [Unknown]
  - Chest discomfort [Unknown]
  - Carpal tunnel decompression [Unknown]
  - Oophorectomy [Unknown]
  - Mastoidectomy [Unknown]
  - Cardiac disorder [Unknown]
  - Haematocrit decreased [Unknown]
  - Bone fragmentation [Unknown]
  - Osteoarthritis [Unknown]
  - Fracture displacement [Unknown]
  - Device failure [Unknown]
